FAERS Safety Report 13544191 (Version 1)
Quarter: 2017Q2

REPORT INFORMATION
  Report Type: Spontaneous
  Country: US (occurrence: US)
  Receive Date: 20170512
  Receipt Date: 20170512
  Transmission Date: 20170830
  Serious: Yes (Other)
  Sender: FDA-Public Use
  Company Number: None

PATIENT
  Age: 34 Year
  Sex: Female
  Weight: 79.65 kg

DRUGS (7)
  1. PERJETA [Concomitant]
     Active Substance: PERTUZUMAB
  2. DOCETAXEL. [Concomitant]
     Active Substance: DOCETAXEL
  3. POTASSIUM [Concomitant]
     Active Substance: POTASSIUM
  4. HERCEPTIN [Concomitant]
     Active Substance: TRASTUZUMAB
  5. VITAMIN D [Concomitant]
     Active Substance: CHOLECALCIFEROL
  6. CARBOPLATIN. [Concomitant]
     Active Substance: CARBOPLATIN
  7. NEULASTA [Suspect]
     Active Substance: PEGFILGRASTIM
     Indication: CHEMOTHERAPY
     Dosage: ?          OTHER FREQUENCY:ONCE EVERY 3 WEEKS;?
     Route: 058
     Dates: start: 20170407, end: 20170407

REACTIONS (10)
  - Abdominal pain [None]
  - Face oedema [None]
  - Dyspnoea [None]
  - Feeling abnormal [None]
  - Diarrhoea [None]
  - Pain [None]
  - Asthenia [None]
  - Lethargy [None]
  - Rash [None]
  - Incoherent [None]

NARRATIVE: CASE EVENT DATE: 20170407
